FAERS Safety Report 16336671 (Version 1)
Quarter: 2019Q2

REPORT INFORMATION
  Report Type: Spontaneous
  Country: US (occurrence: US)
  Receive Date: 20190520
  Receipt Date: 20190520
  Transmission Date: 20190711
  Serious: No
  Sender: FDA-Public Use
  Company Number: None

PATIENT
  Age: 24 Year
  Sex: Female
  Weight: 49.5 kg

DRUGS (1)
  1. UNSEEN SUNSCREEN BROAD SPECTRUM SPF 40 [Suspect]
     Active Substance: AVOBENZONE\HOMOSALATE\OCTINOXATE\OCTISALATE
     Indication: PROPHYLAXIS AGAINST SOLAR RADIATION
     Route: 061
     Dates: start: 20190429, end: 20190508

REACTIONS (7)
  - Neurotoxicity [None]
  - Photosensitivity reaction [None]
  - Amnesia [None]
  - Vertigo [None]
  - Anxiety [None]
  - Nausea [None]
  - Cognitive disorder [None]

NARRATIVE: CASE EVENT DATE: 20190429
